FAERS Safety Report 5404728-6 (Version None)
Quarter: 2007Q3

REPORT INFORMATION
  Report Type: 
  Country: None (occurrence: None)
  Receive Date: 20070801
  Receipt Date: 20070718
  Transmission Date: 20080115
  Serious: Yes (Death, Life-Threatening)
  Sender: FDA-Public Use
  Company Number: 2007JP003430

PATIENT
  Age: 4 Day
  Sex: Female

DRUGS (2)
  1. CEFIZOX [Suspect]
     Indication: PYREXIA
     Dosage: 250 MG,
     Dates: start: 20070523, end: 20070523
  2. CROCIN           FORMULATION UNKNOWN [Concomitant]

REACTIONS (4)
  - HICCUPS [None]
  - HYPERHIDROSIS [None]
  - RESTLESSNESS [None]
  - SKIN DISCOLOURATION [None]
